FAERS Safety Report 5920885-7 (Version None)
Quarter: 2008Q4

REPORT INFORMATION
  Report Type: 
  Country: None (occurrence: None)
  Receive Date: 20081015
  Receipt Date: 20081015
  Transmission Date: 20090506
  Serious: Yes (Hospitalization)
  Sender: FDA-Public Use
  Company Number: None

PATIENT
  Sex: Female
  Weight: 52.1637 kg

DRUGS (1)
  1. RECLAST [Suspect]
     Dosage: 1 X YEAR, ROUTE:  IN MY HAND VEIN, ROUTE:  INFUSION
     Dates: start: 20081010, end: 20081010

REACTIONS (13)
  - ARTHRALGIA [None]
  - ASTHENIA [None]
  - BLOOD CALCIUM DECREASED [None]
  - BONE PAIN [None]
  - CONFUSIONAL STATE [None]
  - DECREASED ACTIVITY [None]
  - DISTURBANCE IN ATTENTION [None]
  - DIZZINESS [None]
  - INFLUENZA [None]
  - PAIN [None]
  - RENAL PAIN [None]
  - STARING [None]
  - VOMITING [None]
